FAERS Safety Report 20839641 (Version 1)
Quarter: 2022Q2

REPORT INFORMATION
  Report Type: Spontaneous
  Country: TL (occurrence: TL)
  Receive Date: 20220517
  Receipt Date: 20220517
  Transmission Date: 20220721
  Serious: Yes (Other)
  Sender: FDA-Public Use
  Company Number: TL-BAYER-2022A066959

PATIENT
  Age: 48 Year
  Sex: Female
  Weight: 45 kg

DRUGS (1)
  1. LEVONORGESTREL [Suspect]
     Active Substance: LEVONORGESTREL
     Indication: Contraception
     Dosage: UNK
     Route: 059
     Dates: start: 20170407, end: 20220407

REACTIONS (2)
  - Device breakage [Unknown]
  - Complication of device removal [Unknown]

NARRATIVE: CASE EVENT DATE: 20220407
